FAERS Safety Report 6383243-X (Version None)
Quarter: 2009Q3

REPORT INFORMATION
  Report Type: 
  Country: None (occurrence: None)
  Receive Date: 20090930
  Receipt Date: 20090923
  Transmission Date: 20100115
  Serious: Yes (Hospitalization, Other)
  Sender: FDA-Public Use
  Company Number: JP-ROXANE LABORATORIES, INC.-2009-RO-00982RO

PATIENT
  Age: 61 Year
  Sex: Female
  Weight: 54 kg

DRUGS (12)
  1. AMLODIPINE [Suspect]
     Indication: HYPERTENSION
     Route: 048
  2. CANDESARTAN CILEXETIL [Suspect]
     Indication: HYPERTENSION
     Route: 048
  3. PROPOFOL [Suspect]
     Indication: INDUCTION OF ANAESTHESIA
  4. VECURONIUM BROMIDE [Suspect]
     Indication: INDUCTION OF ANAESTHESIA
  5. PIPERACILLIN [Suspect]
     Indication: ANTIBIOTIC PROPHYLAXIS
     Route: 042
  6. OXYGEN [Suspect]
     Indication: MAINTENANCE OF ANAESTHESIA
  7. SEVOFLURANE [Suspect]
     Indication: MAINTENANCE OF ANAESTHESIA
  8. NEOSTIGMINE [Suspect]
     Indication: ANAESTHESIA REVERSAL
  9. ATROPINE [Suspect]
     Indication: ANAESTHESIA REVERSAL
  10. METHYLPREDNISOLONE 4MG TAB [Concomitant]
     Indication: LARYNGEAL OEDEMA
     Route: 042
  11. ADRENALIN [Concomitant]
     Indication: LARYNGEAL OEDEMA
     Route: 058
  12. STEROID [Concomitant]
     Indication: LARYNGEAL OEDEMA
     Route: 042

REACTIONS (6)
  - ANGIOEDEMA [None]
  - DYSPNOEA [None]
  - LARYNGEAL OEDEMA [None]
  - RESPIRATORY ACIDOSIS [None]
  - STRIDOR [None]
  - VOCAL CORD POLYP [None]
